FAERS Safety Report 6678277-1 (Version None)
Quarter: 2010Q2

REPORT INFORMATION
  Report Type: 
  Country: None (occurrence: None)
  Receive Date: 20100408
  Receipt Date: 20100408
  Transmission Date: 20101027
  Serious: No
  Sender: FDA-Public Use
  Company Number: None

PATIENT
  Age: 20 Year
  Sex: Female
  Weight: 77.1115 kg

DRUGS (2)
  1. KEPPRA [Suspect]
     Indication: CONVULSION
     Dosage: 1500MG 2 TIMES A DAY PO
     Route: 048
     Dates: start: 20090701, end: 20100407
  2. TOPAMAX [Suspect]
     Indication: CONVULSION
     Dosage: 150MG 2 TIMES A DAY PO
     Route: 048
     Dates: start: 20090401, end: 20100407

REACTIONS (3)
  - CONVULSION [None]
  - DRUG INEFFECTIVE [None]
  - PRODUCT SUBSTITUTION ISSUE [None]
